FAERS Safety Report 7122229-4 (Version None)
Quarter: 2010Q4

REPORT INFORMATION
  Report Type: 
  Country: None (occurrence: None)
  Receive Date: 20101119
  Receipt Date: 20101119
  Transmission Date: 20110411
  Serious: Yes (Hospitalization)
  Sender: FDA-Public Use
  Company Number: None

PATIENT
  Age: 64 Year
  Sex: Female

DRUGS (1)
  1. CIPRO [Suspect]
     Dosage: 500MG Q12H ORAL (PO)
     Route: 048
     Dates: start: 20101019, end: 20101020

REACTIONS (3)
  - RASH MACULO-PAPULAR [None]
  - RASH PRURITIC [None]
  - THROAT TIGHTNESS [None]
